FAERS Safety Report 10101953 (Version 1)
Quarter: 2014Q2

REPORT INFORMATION
  Report Type: Spontaneous
  Country: US (occurrence: None)
  Receive Date: 20140423
  Receipt Date: 20140423
  Transmission Date: 20141212
  Serious: No
  Sender: FDA-Public Use
  Company Number: None

PATIENT
  Age: 83 Year
  Sex: Female
  Weight: 86.18 kg

DRUGS (3)
  1. ALENDRONATE [Suspect]
     Indication: BONE DISORDER
     Route: 048
     Dates: start: 20140115, end: 20140115
  2. TYLENOL [Concomitant]
  3. VITAMIN D [Concomitant]

REACTIONS (4)
  - Fatigue [None]
  - Arthralgia [None]
  - Joint swelling [None]
  - Insomnia [None]
